FAERS Safety Report 9611033 (Version 2)
Quarter: 2013Q4

REPORT INFORMATION
  Report Type: Report from Study
  Country: IL (occurrence: IL)
  Receive Date: 20131009
  Receipt Date: 20131017
  Transmission Date: 20140711
  Serious: Yes (Death, Hospitalization)
  Sender: FDA-Public Use
  Company Number: IL-GLAXOSMITHKLINE-Z0021044A

PATIENT
  Age: 75 Year
  Sex: Male

DRUGS (1)
  1. ELTROMBOPAG [Suspect]
     Indication: THROMBOCYTOPENIA
     Route: 048
     Dates: start: 20130627, end: 20130813

REACTIONS (2)
  - Pneumonitis [Not Recovered/Not Resolved]
  - Haemorrhage intracranial [Fatal]
